FAERS Safety Report 6286890-9 (Version None)
Quarter: 2009Q3

REPORT INFORMATION
  Report Type: 
  Country: None (occurrence: None)
  Receive Date: 20090728
  Receipt Date: 20090717
  Transmission Date: 20100115
  Serious: Yes (Hospitalization, Disabling, Other)
  Sender: FDA-Public Use
  Company Number: US-MERCK-0606USA05644

PATIENT
  Age: 67 Year
  Sex: Female

DRUGS (23)
  1. FOSAMAX [Suspect]
     Indication: OSTEOPOROSIS
     Route: 048
     Dates: start: 19970716, end: 20001202
  2. FOSAMAX [Suspect]
     Route: 048
     Dates: start: 20010107, end: 20051116
  3. FOSAMAX [Suspect]
     Indication: OSTEOPENIA
     Route: 048
     Dates: start: 19970716, end: 20001202
  4. FOSAMAX [Suspect]
     Route: 048
     Dates: start: 20010107, end: 20051116
  5. ZOLOFT [Concomitant]
     Route: 048
     Dates: start: 19980101
  6. LIPITOR [Concomitant]
     Indication: BLOOD CHOLESTEROL
     Route: 065
     Dates: start: 19981201
  7. ZANTAC [Concomitant]
     Route: 065
  8. CLARITIN [Concomitant]
     Route: 065
  9. NASACORT [Concomitant]
     Route: 065
  10. SYNTHROID [Concomitant]
     Indication: THYROID DISORDER
     Route: 048
     Dates: start: 19970101
  11. PREMARIN [Concomitant]
     Indication: HORMONE REPLACEMENT THERAPY
     Route: 065
     Dates: start: 19980101, end: 20030101
  12. PROGESTERONE [Concomitant]
     Route: 065
  13. VITAMINS (UNSPECIFIED) [Concomitant]
     Route: 065
  14. ASCORBIC ACID [Concomitant]
     Route: 065
  15. VITAMIN E [Concomitant]
     Route: 065
  16. CALCIUM (UNSPECIFIED) AND VITAMIN D (UNSPECIFIED) [Concomitant]
     Route: 065
  17. CELEBREX [Concomitant]
     Route: 065
  18. UNIVASC [Concomitant]
     Route: 065
  19. ASPIRIN [Concomitant]
     Route: 065
  20. LIBRIUM [Concomitant]
     Route: 065
  21. PREDNISONE [Concomitant]
     Route: 065
  22. ZOCOR [Concomitant]
     Route: 048
  23. ESTROGENS (UNSPECIFIED) [Concomitant]
     Route: 065

REACTIONS (77)
  - ABSCESS [None]
  - ACTINIC KERATOSIS [None]
  - ALCOHOLISM [None]
  - ARTERIOSCLEROSIS [None]
  - ATELECTASIS [None]
  - BALANCE DISORDER [None]
  - BONE DENSITY DECREASED [None]
  - BRONCHIECTASIS [None]
  - BRONCHITIS CHRONIC [None]
  - BURSITIS [None]
  - CARDIAC FLUTTER [None]
  - CEREBRAL ATROPHY [None]
  - CEREBRAL ISCHAEMIA [None]
  - CEREBROVASCULAR ACCIDENT [None]
  - CHOLECYSTECTOMY [None]
  - CHOLECYSTITIS ACUTE [None]
  - CHOLECYSTITIS CHRONIC [None]
  - COLLAPSE OF LUNG [None]
  - COLONIC POLYP [None]
  - COLONIC STENOSIS [None]
  - CONTUSION [None]
  - CYSTITIS [None]
  - DERMAL CYST [None]
  - DIARRHOEA [None]
  - DIVERTICULUM [None]
  - DIVERTICULUM INTESTINAL [None]
  - DIZZINESS [None]
  - FALL [None]
  - GASTROINTESTINAL HAEMORRHAGE [None]
  - HAEMOPTYSIS [None]
  - HEPATIC STEATOSIS [None]
  - HEPATOMEGALY [None]
  - HOT FLUSH [None]
  - HYPERADRENALISM [None]
  - HYPERTENSION [None]
  - INJURY [None]
  - INTESTINAL STENOSIS [None]
  - LACERATION [None]
  - LACUNAR INFARCTION [None]
  - LENS DISORDER [None]
  - LOBAR PNEUMONIA [None]
  - LUMBAR RADICULOPATHY [None]
  - LUNG INFECTION [None]
  - MACROCYTOSIS [None]
  - MACULAR OEDEMA [None]
  - MASS [None]
  - MELANOCYTIC NAEVUS [None]
  - MEMORY IMPAIRMENT [None]
  - ORAL DISORDER [None]
  - ORAL TORUS [None]
  - OSTEOARTHRITIS [None]
  - OSTEOMYELITIS [None]
  - OSTEONECROSIS [None]
  - PERIODONTAL DISEASE [None]
  - POLYMYALGIA RHEUMATICA [None]
  - RECTAL POLYP [None]
  - RENAL CYST [None]
  - RESPIRATORY FAILURE [None]
  - RETINAL VEIN OCCLUSION [None]
  - RHINORRHOEA [None]
  - ROTATOR CUFF SYNDROME [None]
  - SINUSITIS [None]
  - SKIN CANCER [None]
  - SKIN LACERATION [None]
  - SPINAL OSTEOARTHRITIS [None]
  - TENDONITIS [None]
  - THROMBOSIS [None]
  - THYROID DISORDER [None]
  - TINNITUS [None]
  - TONGUE DISORDER [None]
  - TONGUE ULCERATION [None]
  - TOOTH ABSCESS [None]
  - ULCER [None]
  - URINARY TRACT INFECTION [None]
  - VENTRICULAR EXTRASYSTOLES [None]
  - VITREOUS DETACHMENT [None]
  - WEIGHT DECREASED [None]
